FAERS Safety Report 18326441 (Version 3)
Quarter: 2020Q4

REPORT INFORMATION
  Report Type: Spontaneous
  Country: TW (occurrence: TW)
  Receive Date: 20200929
  Receipt Date: 20201106
  Transmission Date: 20210113
  Serious: Yes (Other)
  Sender: FDA-Public Use
  Company Number: TW-PFIZER INC-2020374189

PATIENT
  Age: 79 Year
  Sex: Male

DRUGS (1)
  1. XELJANZ [Suspect]
     Active Substance: TOFACITINIB CITRATE
     Indication: RHEUMATOID ARTHRITIS
     Dosage: 5 MG, 2X/DAY
     Route: 048
     Dates: start: 20171220

REACTIONS (8)
  - Red blood cell sedimentation rate increased [Not Recovered/Not Resolved]
  - Upper gastrointestinal haemorrhage [Not Recovered/Not Resolved]
  - Occult blood positive [Not Recovered/Not Resolved]
  - Faeces discoloured [Not Recovered/Not Resolved]
  - Dizziness [Not Recovered/Not Resolved]
  - Haemoglobin decreased [Not Recovered/Not Resolved]
  - Haemorrhoids [Not Recovered/Not Resolved]
  - Large intestine polyp [Not Recovered/Not Resolved]

NARRATIVE: CASE EVENT DATE: 202009
